FAERS Safety Report 7889653-3 (Version None)
Quarter: 2011Q4

REPORT INFORMATION
  Report Type: 
  Country: None (occurrence: None)
  Receive Date: 20111103
  Receipt Date: 20111031
  Transmission Date: 20120403
  Serious: No
  Sender: FDA-Public Use
  Company Number: US-PFIZER INC-2011266981

PATIENT
  Sex: Female

DRUGS (1)
  1. PRISTIQ [Suspect]
     Dosage: UNK

REACTIONS (5)
  - FEELING ABNORMAL [None]
  - DEPRESSION [None]
  - SPEECH DISORDER [None]
  - SENSATION OF PRESSURE [None]
  - MOOD SWINGS [None]
